FAERS Safety Report 13558926 (Version 5)
Quarter: 2017Q4

REPORT INFORMATION
  Report Type: Spontaneous
  Country: US (occurrence: US)
  Receive Date: 20170518
  Receipt Date: 20171223
  Transmission Date: 20180320
  Serious: Yes (Death, Life-Threatening, Hospitalization, Other)
  Sender: FDA-Public Use
  Company Number: US-SUN PHARMACEUTICAL INDUSTRIES LTD-2017US-140814

PATIENT
  Age: 24 Year
  Sex: Female

DRUGS (1)
  1. ACETAMINOPHEN. [Suspect]
     Active Substance: ACETAMINOPHEN
     Indication: PRODUCT USED FOR UNKNOWN INDICATION
     Dosage: UNK
     Route: 048

REACTIONS (10)
  - Toxicity to various agents [Fatal]
  - Overdose [Fatal]
  - Distributive shock [Fatal]
  - Metabolic acidosis [Fatal]
  - Cardiotoxicity [Fatal]
  - Hepatotoxicity [Fatal]
  - Completed suicide [Fatal]
  - Acute hepatic failure [Fatal]
  - Coma [Fatal]
  - Heart injury [Fatal]
